FAERS Safety Report 9974494 (Version 1)
Quarter: 2014Q1

REPORT INFORMATION
  Report Type: Report from Study
  Country: US (occurrence: US)
  Receive Date: 20140306
  Receipt Date: 20140306
  Transmission Date: 20141002
  Serious: No
  Sender: FDA-Public Use
  Company Number: US-ABBVIE-13P-163-1157169-00

PATIENT
  Sex: Female

DRUGS (2)
  1. HUMIRA [Suspect]
     Indication: RHEUMATOID ARTHRITIS
     Dates: start: 20130502, end: 20130708
  2. TYLENOL [Concomitant]
     Indication: ARTHRALGIA
     Dosage: 500 MG X 2 EVERY 6 TO 8 HOURS

REACTIONS (1)
  - Pulmonary fibrosis [Not Recovered/Not Resolved]
